FAERS Safety Report 18452611 (Version 24)
Quarter: 2024Q1

REPORT INFORMATION
  Report Type: Spontaneous
  Country: US (occurrence: US)
  Receive Date: 20201102
  Receipt Date: 20240312
  Transmission Date: 20240409
  Serious: Yes (Hospitalization, Other)
  Sender: FDA-Public Use
  Company Number: US-PFIZER INC-2020415333

PATIENT
  Age: 75 Year
  Sex: Female
  Weight: 142 kg

DRUGS (3)
  1. IBRANCE [Suspect]
     Active Substance: PALBOCICLIB
     Indication: Breast cancer female
     Dosage: 125 MG, CYCLIC (1 TABLET FOR 21 DAYS AND OFF FOR 7 DAYS)
     Route: 048
     Dates: start: 20170519, end: 2020
  2. IBRANCE [Suspect]
     Active Substance: PALBOCICLIB
     Dosage: 125 MG, CYCLIC (DAILY, AS DIRECTED 21 + 12)
     Route: 048
     Dates: start: 2020
  3. IBRANCE [Suspect]
     Active Substance: PALBOCICLIB
     Dosage: 100 MG, CYCLIC (DAYS 1-21, TAKE WHOLE WITH WATER AND FOOD, AT APPROXIMATELY THE SAME TIME EACH DAY)
     Route: 048
     Dates: end: 20231225

REACTIONS (8)
  - Cellulitis [Recovering/Resolving]
  - Urinary tract infection [Unknown]
  - Carbon dioxide decreased [Unknown]
  - Pneumonia [Unknown]
  - Dyspnoea [Unknown]
  - Product prescribing error [Unknown]
  - Confusional state [Unknown]
  - Dysphonia [Not Recovered/Not Resolved]

NARRATIVE: CASE EVENT DATE: 20200101
